FAERS Safety Report 8903465 (Version 3)
Quarter: 2013Q3

REPORT INFORMATION
  Report Type: Report from Study
  Country: CA (occurrence: CA)
  Receive Date: 20121113
  Receipt Date: 20130703
  Transmission Date: 20140515
  Serious: Yes (Other)
  Sender: FDA-Public Use
  Company Number: CA-JNJFOC-20121101107

PATIENT
  Age: 62 Year
  Sex: Female
  Weight: 103.87 kg

DRUGS (36)
  1. REMICADE [Suspect]
     Indication: CROHN^S DISEASE
     Route: 042
     Dates: start: 20111206
  2. RAMIPRIL [Concomitant]
     Indication: HYPERTENSION
     Route: 048
  3. VENLAFAXINE [Concomitant]
     Indication: ANTIDEPRESSANT THERAPY
     Route: 065
  4. QUETIAPINE [Concomitant]
     Indication: SEDATION
     Dosage: 4 TABS AT BEDTIME
     Route: 048
  5. CLOPIDOGREL [Concomitant]
     Indication: ANTICOAGULANT THERAPY
     Route: 048
  6. ACETYL SALICYLIC ACID [Concomitant]
     Indication: ANALGESIC THERAPY
     Route: 048
  7. DOCUSATE [Concomitant]
     Indication: ABNORMAL FAECES
     Route: 048
  8. FERROUS SULPHATE [Concomitant]
     Indication: PRODUCT USED FOR UNKNOWN INDICATION
     Dosage: HEMATINIC AND BLOOD CELL STIMULATORS
     Route: 048
  9. METOPROLOL [Concomitant]
     Indication: PRODUCT USED FOR UNKNOWN INDICATION
     Route: 048
  10. VITAMIN D [Concomitant]
     Indication: PRODUCT USED FOR UNKNOWN INDICATION
     Dosage: 1000 UNIT TABLET
     Route: 048
  11. NOVO ALPRAZOL [Concomitant]
     Indication: PRODUCT USED FOR UNKNOWN INDICATION
     Route: 048
  12. OMEPRAZOLE [Concomitant]
     Indication: PROPHYLAXIS AGAINST GASTROINTESTINAL ULCER
     Route: 048
  13. DETROL LA [Concomitant]
     Indication: ANTICHOLINERGIC SYNDROME
     Route: 048
  14. LASIX [Concomitant]
     Indication: DIURETIC THERAPY
     Dosage: 4 TABLETS IN MORNING
     Route: 048
  15. VICTOZA [Concomitant]
     Indication: PRODUCT USED FOR UNKNOWN INDICATION
     Route: 058
  16. MESASAL [Concomitant]
     Indication: ANALGESIC THERAPY
     Dosage: 2 TABLETS
     Route: 048
  17. LIPITOR [Concomitant]
     Indication: PRODUCT USED FOR UNKNOWN INDICATION
     Dosage: LIPOTROPICS
     Route: 048
  18. ALL OTHER THERAPEUTIC PRODUCTS [Concomitant]
     Indication: PRODUCT USED FOR UNKNOWN INDICATION
     Route: 048
  19. HUMULIN N [Concomitant]
     Indication: DIABETES MELLITUS MANAGEMENT
     Dosage: 100 U/ML, INJECT 32 UNITS EACH MORNING AND 88 UNITS IN THE EVENING
     Route: 058
  20. BACTROBAN [Concomitant]
     Indication: PRODUCT USED FOR UNKNOWN INDICATION
     Route: 065
  21. GALENIC /PENTAZOCINE HCL/NALOXONE HCL/ [Concomitant]
     Indication: PRODUCT USED FOR UNKNOWN INDICATION
     Route: 048
  22. ATORVASTATIN CALCIUM [Concomitant]
     Dosage: LIPOTROPICS
     Route: 065
  23. APO-ALPRAZ [Concomitant]
     Indication: SEDATION
     Route: 065
  24. METHOTREXATE [Concomitant]
     Indication: NEOPLASM PROPHYLAXIS
     Route: 048
  25. PENTAZOCINE [Concomitant]
     Indication: ANALGESIC THERAPY
     Dosage: WHEN REQUIRED
     Route: 065
  26. APO-IBUPROFEN [Concomitant]
     Indication: ARTHRITIS
     Dosage: ONE TO TWO TABLETS, WHEN REQUIRED
     Route: 065
  27. APO-IBUPROFEN [Concomitant]
     Indication: ARTHRITIS
     Dosage: WHEN REQUIRED
     Route: 065
  28. APO-CLINDAMYCIN [Concomitant]
     Indication: ANTIBIOTIC THERAPY
     Dosage: FOR 5 DAYS
     Route: 065
  29. APO-KETOROLAC [Concomitant]
     Indication: ANALGESIC THERAPY
     Dosage: ONE TABLET EVERY 6 HOURS WHEN REQUIRED
     Route: 065
  30. HUMALOG [Concomitant]
     Indication: DIABETES MELLITUS MANAGEMENT
     Dosage: 100 U/ML (INJECT 17 UNITS SUBCUTANEOUSLY AT SUPPER)
     Route: 058
  31. APO ACETAMINOPHEN [Concomitant]
     Indication: ANALGESIC THERAPY
     Dosage: 1-2 CAPLETS EVERY 4-6 HOURS WHEN REQUIRED (MAX OF 8 TABLETS/DAY)
     Route: 065
  32. FOLIC ACID [Concomitant]
     Indication: PRODUCT USED FOR UNKNOWN INDICATION
     Route: 065
  33. GABAPENTIN [Concomitant]
     Indication: CONVULSION PROPHYLAXIS
     Dosage: 2 CAPSULES IN THE MORNING, 1 AT NOON AND 2 AT NIGHT
     Route: 048
  34. FUCIDIN [Concomitant]
     Indication: ANTIBIOTIC THERAPY
     Dosage: APPLY TO AFFECTED AREA
     Route: 065
  35. NITROFURANTOIN [Concomitant]
     Indication: URINARY TRACT INFECTION
     Dosage: FOR 7 DAYS
     Route: 065
  36. OMEPRAZOLE [Concomitant]
     Indication: PRODUCT USED FOR UNKNOWN INDICATION
     Route: 048

REACTIONS (3)
  - Breast mass [Recovered/Resolved]
  - Breast discharge [Recovered/Resolved]
  - Cough [Recovered/Resolved]
